FAERS Safety Report 4892907-6 (Version None)
Quarter: 2005Q4

REPORT INFORMATION
  Report Type: 
  Country: None (occurrence: None)
  Receive Date: 20051220
  Receipt Date: 20050909
  Transmission Date: 20060501
  Serious: Yes (Other)
  Sender: FDA-Public Use
  Company Number: 417470

PATIENT
  Sex: Female

DRUGS (1)
  1. BONIVA [Suspect]
     Indication: DRUG USE FOR UNKNOWN INDICATION
     Dates: start: 20050601, end: 20050801

REACTIONS (3)
  - ARTHRALGIA [None]
  - BONE PAIN [None]
  - GASTROOESOPHAGEAL REFLUX DISEASE [None]
